FAERS Safety Report 9630695 (Version 4)
Quarter: 2013Q4

REPORT INFORMATION
  Report Type: Spontaneous
  Country: US (occurrence: None)
  Receive Date: 20131016
  Receipt Date: 20131106
  Transmission Date: 20140711
  Serious: Yes (Congenital Anomaly)
  Sender: FDA-Public Use
  Company Number: ADR-2013H2168

PATIENT
  Sex: 0

DRUGS (4)
  1. LAMIVUDINE AND ZIDOVUDINE [Suspect]
     Dates: start: 20090402
  2. ATAZANIVIR SULFATE (REYATAZ) [Concomitant]
  3. RITONAVIR (NORVIR) [Concomitant]
  4. TENOFOVIR DISOPROXIL FUMARATE+EMTRICITABINE (TRUVADA) [Concomitant]

REACTIONS (2)
  - Haemangioma [None]
  - Haemangioma congenital [None]
